FAERS Safety Report 16472451 (Version 1)
Quarter: 2019Q2

REPORT INFORMATION
  Report Type: Spontaneous
  Country: CN (occurrence: CN)
  Receive Date: 20190625
  Receipt Date: 20190625
  Transmission Date: 20190711
  Serious: Yes (Other)
  Sender: FDA-Public Use
  Company Number: CN-ROCHE-2339877

PATIENT
  Age: 53 Year
  Sex: Male
  Weight: 56 kg

DRUGS (9)
  1. OXALIPLATIN. [Concomitant]
     Active Substance: OXALIPLATIN
     Indication: ADENOCARCINOMA GASTRIC
     Route: 065
     Dates: start: 20170426, end: 20180730
  2. APATINIB MESYLATE [Concomitant]
     Active Substance: APATINIB
     Route: 065
     Dates: start: 20190312
  3. APATINIB MESYLATE [Concomitant]
     Active Substance: APATINIB
     Route: 065
     Dates: start: 20181116, end: 20190301
  4. XELODA [Suspect]
     Active Substance: CAPECITABINE
     Indication: ADENOCARCINOMA GASTRIC
     Route: 065
     Dates: start: 20170426, end: 20180730
  5. XELODA [Suspect]
     Active Substance: CAPECITABINE
     Route: 065
     Dates: start: 20180807, end: 20181020
  6. DOCETAXEL. [Concomitant]
     Active Substance: DOCETAXEL
     Indication: ADENOCARCINOMA GASTRIC
     Route: 065
     Dates: start: 20181116, end: 20190301
  7. IRINOTECAN [Concomitant]
     Active Substance: IRINOTECAN
     Indication: ADENOCARCINOMA GASTRIC
     Route: 065
     Dates: start: 20190312
  8. APATINIB MESYLATE [Concomitant]
     Active Substance: APATINIB
     Indication: ADENOCARCINOMA GASTRIC
     Route: 065
     Dates: start: 20180807, end: 20181020
  9. HERCEPTIN [Suspect]
     Active Substance: TRASTUZUMAB
     Indication: ADENOCARCINOMA GASTRIC
     Route: 065
     Dates: start: 20190411

REACTIONS (5)
  - Bone marrow failure [Unknown]
  - Prepyloric stenosis [Unknown]
  - Gastrointestinal haemorrhage [Unknown]
  - White blood cell count decreased [Recovered/Resolved]
  - Weight increased [Unknown]

NARRATIVE: CASE EVENT DATE: 2019
